FAERS Safety Report 22033541 (Version 2)
Quarter: 2023Q1

REPORT INFORMATION
  Report Type: Report from Study
  Country: US (occurrence: US)
  Receive Date: 20230224
  Receipt Date: 20230324
  Transmission Date: 20230417
  Serious: Yes (Other)
  Sender: FDA-Public Use
  Company Number: US-GILEAD-2023-0618009

PATIENT
  Age: 64 Year
  Sex: Female

DRUGS (1)
  1. SACITUZUMAB GOVITECAN-HZIY [Suspect]
     Active Substance: SACITUZUMAB GOVITECAN-HZIY
     Indication: Breast cancer metastatic
     Dosage: ^FULL^
     Route: 065
     Dates: start: 202208, end: 202211

REACTIONS (3)
  - COVID-19 pneumonia [Unknown]
  - Sepsis [Unknown]
  - COVID-19 [Unknown]
